FAERS Safety Report 4952675-6 (Version None)
Quarter: 2006Q1

REPORT INFORMATION
  Report Type: 
  Country: None (occurrence: None)
  Receive Date: 20060324
  Receipt Date: 20060315
  Transmission Date: 20060701
  Serious: Yes (Hospitalization)
  Sender: FDA-Public Use
  Company Number: LT-ABBOTT-06P-234-0328391-00

PATIENT
  Sex: Male

DRUGS (3)
  1. KLACID SR [Suspect]
     Indication: INFLUENZA IMMUNISATION
     Route: 048
     Dates: start: 20060315
  2. KLACID SR [Suspect]
     Indication: BRONCHITIS
  3. HOMEOPATIC PREPARATION [Concomitant]
     Indication: INFLUENZA

REACTIONS (2)
  - HYPERSENSITIVITY [None]
  - LARYNGEAL OEDEMA [None]
